FAERS Safety Report 23633178 (Version 2)
Quarter: 2024Q4

REPORT INFORMATION
  Report Type: Spontaneous
  Country: US (occurrence: US)
  Receive Date: 20240314
  Receipt Date: 20241224
  Transmission Date: 20250115
  Serious: Yes (Hospitalization, Other)
  Sender: BLUEPRINT MEDICINES
  Company Number: US-Blueprint Medicines Corporation-2692

PATIENT
  Age: 24 Year
  Sex: Female

DRUGS (1)
  1. AYVAKIT [Suspect]
     Active Substance: AVAPRITINIB
     Indication: Systemic mastocytosis
     Dosage: 25MG DAILY
     Route: 065
     Dates: start: 20230628

REACTIONS (5)
  - Renal impairment [Recovered/Resolved]
  - Rash [Unknown]
  - Flushing [Unknown]
  - Back pain [Unknown]
  - Skin lesion [Unknown]
